FAERS Safety Report 5967221-8 (Version None)
Quarter: 2008Q4

REPORT INFORMATION
  Report Type: 
  Country: None (occurrence: None)
  Receive Date: 20081125
  Receipt Date: 20081015
  Transmission Date: 20090506
  Serious: No
  Sender: FDA-Public Use
  Company Number: US-AMGEN-KDL313648

PATIENT
  Sex: Female

DRUGS (2)
  1. ENBREL [Suspect]
     Indication: RHEUMATOID ARTHRITIS
     Route: 058
     Dates: start: 20080808
  2. SULFASALAZINE [Concomitant]
     Dates: start: 20080926

REACTIONS (6)
  - COUGH [None]
  - EAR PAIN [None]
  - LOWER RESPIRATORY TRACT INFECTION [None]
  - RHEUMATOID ARTHRITIS [None]
  - SINUS DISORDER [None]
  - TOOTHACHE [None]
